FAERS Safety Report 10617363 (Version 2)
Quarter: 2014Q4

REPORT INFORMATION
  Report Type: Report from Study
  Country: JP (occurrence: JP)
  Receive Date: 20141201
  Receipt Date: 20141201
  Transmission Date: 20150529
  Serious: Yes (Life-Threatening, Hospitalization, Other)
  Sender: FDA-Public Use
  Company Number: JP-GLAXOSMITHKLINE-B0493139A

PATIENT
  Age: 7 Decade
  Sex: Male
  Weight: 65 kg

DRUGS (18)
  1. ABACAVIR SULPHATE [Suspect]
     Active Substance: ABACAVIR
     Indication: HIV INFECTION
     Route: 048
     Dates: start: 20110419
  2. FOSAMPRENAVIR [Suspect]
     Active Substance: FOSAMPRENAVIR
     Indication: HIV INFECTION
     Route: 048
     Dates: start: 20060905, end: 20110418
  3. ZERIT [Concomitant]
     Active Substance: STAVUDINE
     Indication: HIV INFECTION
     Route: 048
     Dates: start: 20060607, end: 20060620
  4. PRAVASTATIN [Concomitant]
     Active Substance: PRAVASTATIN\PRAVASTATIN SODIUM
     Indication: HYPERLIPIDAEMIA
     Route: 048
     Dates: start: 20120215
  5. EPADEL [Concomitant]
     Active Substance: ICOSAPENT
     Indication: HYPERLIPIDAEMIA
     Route: 048
     Dates: start: 20120215, end: 20131224
  6. CRESTOR [Concomitant]
     Active Substance: ROSUVASTATIN CALCIUM
     Indication: HYPERLIPIDAEMIA
     Route: 048
     Dates: start: 20130401, end: 20131224
  7. ADALAT [Concomitant]
     Active Substance: NIFEDIPINE
     Indication: CEREBRAL INFARCTION
     Route: 048
     Dates: start: 20110401, end: 20131224
  8. FOSAMPRENAVIR [Suspect]
     Active Substance: FOSAMPRENAVIR
     Route: 048
     Dates: start: 20140219
  9. REYATAZ [Concomitant]
     Active Substance: ATAZANAVIR SULFATE
     Indication: HIV INFECTION
     Route: 048
     Dates: start: 20060607, end: 20060620
  10. PERSANTIN [Concomitant]
     Active Substance: DIPYRIDAMOLE
     Indication: CEREBRAL INFARCTION
     Route: 048
     Dates: start: 20110401, end: 20131224
  11. LAMIVUDINE. [Suspect]
     Active Substance: LAMIVUDINE
     Indication: HIV INFECTION
     Route: 048
     Dates: start: 20060607, end: 20060620
  12. ISENTRESS [Suspect]
     Active Substance: RALTEGRAVIR POTASSIUM
     Route: 048
     Dates: start: 20110419, end: 20131023
  13. ZITHROMAC [Concomitant]
     Active Substance: AZITHROMYCIN DIHYDRATE
     Indication: OPPORTUNISTIC INFECTION PROPHYLAXIS
     Route: 048
     Dates: start: 20060620, end: 20070201
  14. ZERIT [Concomitant]
     Active Substance: STAVUDINE
     Route: 048
     Dates: start: 20060905, end: 20110418
  15. NORVIR [Concomitant]
     Active Substance: RITONAVIR
     Indication: HIV INFECTION
     Route: 048
     Dates: start: 20060607, end: 20060620
  16. KALETRA [Concomitant]
     Active Substance: LOPINAVIR\RITONAVIR
     Indication: HIV INFECTION
     Route: 048
     Dates: start: 20131024, end: 20140218
  17. LAMIVUDINE. [Suspect]
     Active Substance: LAMIVUDINE
     Route: 048
     Dates: start: 20060905
  18. BASEN [Concomitant]
     Active Substance: VOGLIBOSE
     Indication: DIABETES MELLITUS
     Route: 048
     Dates: start: 20130401, end: 20131224

REACTIONS (4)
  - Renal impairment [Not Recovered/Not Resolved]
  - Cerebral haemorrhage [Recovering/Resolving]
  - Glucose tolerance impaired [Not Recovered/Not Resolved]
  - Putamen haemorrhage [Recovering/Resolving]

NARRATIVE: CASE EVENT DATE: 20061110
